FAERS Safety Report 8078647-3 (Version None)
Quarter: 2012Q1

REPORT INFORMATION
  Report Type: 
  Country: None (occurrence: None)
  Receive Date: 20120124
  Receipt Date: 20120109
  Transmission Date: 20120608
  Serious: Yes (Hospitalization)
  Sender: FDA-Public Use
  Company Number: 2012MA000624

PATIENT
  Age: 52 Year
  Sex: Male

DRUGS (4)
  1. PIPERACILLIN [Concomitant]
  2. METRONIDAZOLE [Concomitant]
  3. GENTAMICIN [Concomitant]
  4. PHENYTOIN [Suspect]
     Indication: CONVULSION
     Dosage: 250 MG; X1; ITVN
     Route: 042

REACTIONS (8)
  - DRUG ADMINISTERED AT INAPPROPRIATE SITE [None]
  - COGNITIVE DISORDER [None]
  - RENAL FAILURE [None]
  - HYPERTENSION [None]
  - TACHYCARDIA [None]
  - CONVULSION [None]
  - HYPERTONIA [None]
  - TREMOR [None]
